FAERS Safety Report 16882916 (Version 2)
Quarter: 2020Q1

REPORT INFORMATION
  Report Type: Spontaneous
  Country: US (occurrence: US)
  Receive Date: 20191004
  Receipt Date: 20200108
  Transmission Date: 20200409
  Serious: Yes (Disabling)
  Sender: FDA-Public Use
  Company Number: US-ABBVIE-19K-163-2947778-00

PATIENT
  Sex: Female

DRUGS (1)
  1. HUMIRA [Suspect]
     Active Substance: ADALIMUMAB
     Indication: CROHN^S DISEASE
     Route: 058

REACTIONS (5)
  - Mobility decreased [Unknown]
  - Hypoaesthesia [Not Recovered/Not Resolved]
  - Malaise [Unknown]
  - Fall [Not Recovered/Not Resolved]
  - Nerve injury [Not Recovered/Not Resolved]
